FAERS Safety Report 6124560-8 (Version None)
Quarter: 2009Q1

REPORT INFORMATION
  Report Type: 
  Country: None (occurrence: None)
  Receive Date: 20090317
  Receipt Date: 20090317
  Transmission Date: 20090719
  Serious: Yes (Life-Threatening, Other)
  Sender: FDA-Public Use
  Company Number: None

PATIENT
  Age: 45 Year
  Sex: Female
  Weight: 84 kg

DRUGS (1)
  1. LEVETIRACETAM [Suspect]
     Indication: CONVULSION PROPHYLAXIS
     Dosage: 750MG BID PO
     Route: 048
     Dates: start: 20090305, end: 20090313

REACTIONS (8)
  - BLOOD SODIUM DECREASED [None]
  - CONDITION AGGRAVATED [None]
  - CONVULSION [None]
  - URINE ANALYSIS ABNORMAL [None]
  - URINE CALCIUM INCREASED [None]
  - URINE PHOSPHATE ABNORMAL [None]
  - URINE POTASSIUM ABNORMAL [None]
  - URINE SODIUM ABNORMAL [None]
